FAERS Safety Report 11364861 (Version 1)
Quarter: 2015Q3

REPORT INFORMATION
  Report Type: Spontaneous
  Country: AU (occurrence: AU)
  Receive Date: 20150811
  Receipt Date: 20150811
  Transmission Date: 20151125
  Serious: Yes (Hospitalization)
  Sender: FDA-Public Use
  Company Number: AU-PFIZER INC-2015239761

PATIENT

DRUGS (2)
  1. LYRICA [Suspect]
     Active Substance: PREGABALIN
     Dosage: 150 MG, UNK
  2. LYRICA [Suspect]
     Active Substance: PREGABALIN
     Dosage: 75 MG, UNK

REACTIONS (11)
  - Atrial fibrillation [Unknown]
  - Aortic valve disease [Unknown]
  - Urinary tract infection [Unknown]
  - Cardiac failure congestive [Unknown]
  - Electrolyte imbalance [Recovered/Resolved]
  - Mitral valve incompetence [Unknown]
  - Ischaemic stroke [Unknown]
  - Aphasia [Unknown]
  - Fluid retention [Unknown]
  - Hemiplegia [Unknown]
  - Tricuspid valve incompetence [Unknown]
